FAERS Safety Report 11599591 (Version 1)
Quarter: 2015Q3

REPORT INFORMATION
  Report Type: Spontaneous
  Country: US (occurrence: US)
  Receive Date: 20150916
  Receipt Date: 20150916
  Transmission Date: 20151125
  Serious: No
  Sender: FDA-Public Use
  Company Number: US-ELI_LILLY_AND_COMPANY-US200710004561

PATIENT
  Age: 58 Year
  Sex: Female

DRUGS (3)
  1. MINOXIDIL. [Concomitant]
     Active Substance: MINOXIDIL
     Indication: ALOPECIA
  2. FORTEO [Suspect]
     Active Substance: TERIPARATIDE
     Dates: start: 2007
  3. FORTEO [Suspect]
     Active Substance: TERIPARATIDE
     Indication: OSTEOPOROSIS
     Dosage: UNK, UNK
     Dates: start: 200710, end: 2007

REACTIONS (8)
  - Fatigue [Not Recovered/Not Resolved]
  - Urticaria [Recovered/Resolved]
  - Rash pruritic [Not Recovered/Not Resolved]
  - Injection site pain [Recovered/Resolved]
  - Arthralgia [Not Recovered/Not Resolved]
  - Lethargy [Not Recovered/Not Resolved]
  - Injection site swelling [Recovered/Resolved]
  - Bone pain [Not Recovered/Not Resolved]

NARRATIVE: CASE EVENT DATE: 2007
